FAERS Safety Report 9862842 (Version 3)
Quarter: 2014Q1

REPORT INFORMATION
  Report Type: Spontaneous
  Country: US (occurrence: US)
  Receive Date: 20140203
  Receipt Date: 20140203
  Transmission Date: 20141002
  Serious: Yes (Hospitalization)
  Sender: FDA-Public Use
  Company Number: PHEH2013US014612

PATIENT
  Age: 68 Year
  Sex: Male
  Weight: 68.7 kg

DRUGS (7)
  1. CLOZARIL [Suspect]
     Indication: SCHIZOPHRENIA
     Dosage: UNK UKN, UNK
     Route: 048
  2. CLOZARIL [Suspect]
     Dosage: 500 MG, (200 QAM AND 300 QHS)
     Route: 048
     Dates: start: 20140128
  3. FLUOXETINE [Concomitant]
     Dosage: 40 MG, QD
     Route: 048
     Dates: start: 20140127
  4. SIMVASTATIN [Concomitant]
     Dosage: 10 MG, QD
     Route: 048
     Dates: start: 20140127
  5. ATENOLOL [Concomitant]
     Dosage: 25 MG, QD
     Route: 048
     Dates: start: 20140127
  6. MEMANTINE [Concomitant]
     Dosage: 10 MG, BID
     Route: 048
     Dates: start: 20140127
  7. LANSOPRAZOLE [Concomitant]
     Dosage: 30 MG, BID
     Route: 048
     Dates: start: 20140127

REACTIONS (3)
  - Gastrointestinal haemorrhage [Recovering/Resolving]
  - White blood cell count increased [Recovering/Resolving]
  - Neutrophil count increased [Unknown]
